FAERS Safety Report 4368454-7 (Version None)
Quarter: 2004Q2

REPORT INFORMATION
  Report Type: 
  Country: None (occurrence: None)
  Receive Date: 20040602
  Receipt Date: 20040329
  Transmission Date: 20050107
  Serious: No
  Sender: FDA-Public Use
  Company Number: US-GLAXOSMITHKLINE-A0504917A

PATIENT
  Age: 70 Year
  Sex: Female

DRUGS (2)
  1. AUGMENTIN [Suspect]
     Indication: ILL-DEFINED DISORDER
     Dosage: 250MG FOUR TIMES PER DAY
     Route: 048
     Dates: start: 20040326, end: 20040327
  2. TUMS [Concomitant]

REACTIONS (1)
  - ASTHENIA [None]
